FAERS Safety Report 18266930 (Version 3)
Quarter: 2021Q3

REPORT INFORMATION
  Report Type: Spontaneous
  Country: US (occurrence: US)
  Receive Date: 20200915
  Receipt Date: 20210702
  Transmission Date: 20211014
  Serious: Yes (Other)
  Sender: FDA-Public Use
  Company Number: US-GILEAD-2020-0494932

PATIENT
  Age: 73 Year
  Sex: Female
  Weight: 86.17 kg

DRUGS (35)
  1. ASPIRIN [ACETYLSALICYLIC ACID] [Concomitant]
     Active Substance: ASPIRIN
  2. ATORVASTATIN [Concomitant]
     Active Substance: ATORVASTATIN
  3. LOVENOX [LEVOFLOXACIN] [Concomitant]
     Active Substance: LEVOFLOXACIN
  4. LEXIVA [Concomitant]
     Active Substance: FOSAMPRENAVIR CALCIUM
  5. METFORMIN [Concomitant]
     Active Substance: METFORMIN HYDROCHLORIDE
  6. VITAMIN D NOS [Concomitant]
     Active Substance: VITAMIN D NOS
  7. AMPICILLIN [Concomitant]
     Active Substance: AMPICILLIN
  8. VANCOMYCIN [Concomitant]
     Active Substance: VANCOMYCIN
  9. PREZISTA [Concomitant]
     Active Substance: DARUNAVIR ETHANOLATE
  10. LOSARTAN. [Concomitant]
     Active Substance: LOSARTAN
  11. XANAX [Concomitant]
     Active Substance: ALPRAZOLAM
  12. CORTICOSTEROID NOS [Concomitant]
     Active Substance: CORTICOSTEROID NOS
  13. ACETAMINOPHEN. [Concomitant]
     Active Substance: ACETAMINOPHEN
  14. HEPARIN [Concomitant]
     Active Substance: HEPARIN SODIUM
  15. ENALAPRIL [Concomitant]
     Active Substance: ENALAPRIL
  16. GLYBURIDE. [Concomitant]
     Active Substance: GLYBURIDE
  17. AMOXICILLIN. [Concomitant]
     Active Substance: AMOXICILLIN
  18. EMTRIVA [Concomitant]
     Active Substance: EMTRICITABINE
  19. PREDNISONE. [Concomitant]
     Active Substance: PREDNISONE
  20. ACTOS [Concomitant]
     Active Substance: PIOGLITAZONE HYDROCHLORIDE
  21. TRUVADA [Suspect]
     Active Substance: EMTRICITABINE\TENOFOVIR DISOPROXIL FUMARATE
     Indication: HIV INFECTION
     Dosage: UNK
     Route: 048
     Dates: start: 20071208, end: 20170927
  22. CALCIUM [Concomitant]
     Active Substance: CALCIUM
  23. FAMOTIDINE. [Concomitant]
     Active Substance: FAMOTIDINE
  24. LANSOPRAZOLE. [Concomitant]
     Active Substance: LANSOPRAZOLE
  25. MAALOX ANTACID [Concomitant]
     Active Substance: ALUMINUM HYDROXIDE\DIMETHICONE\MAGNESIUM HYDROXIDE
  26. TRUVADA [Suspect]
     Active Substance: EMTRICITABINE\TENOFOVIR DISOPROXIL FUMARATE
     Dosage: UNK
     Route: 048
     Dates: start: 20071208, end: 20170627
  27. DESCOVY [Concomitant]
     Active Substance: EMTRICITABINE\TENOFOVIR ALAFENAMIDE FUMARATE
  28. NORVIR [Concomitant]
     Active Substance: RITONAVIR
  29. CRESTOR [Concomitant]
     Active Substance: ROSUVASTATIN CALCIUM
  30. LASIX [Concomitant]
     Active Substance: FUROSEMIDE
  31. SIMVASTATIN. [Concomitant]
     Active Substance: SIMVASTATIN
  32. PANTOPRAZOLE [Concomitant]
     Active Substance: PANTOPRAZOLE
  33. WARFARIN [Concomitant]
     Active Substance: WARFARIN
  34. REYATAZ [Concomitant]
     Active Substance: ATAZANAVIR SULFATE
  35. OMNIPAQUE [Concomitant]
     Active Substance: IOHEXOL

REACTIONS (10)
  - Chronic kidney disease [Not Recovered/Not Resolved]
  - Dysstasia [Unknown]
  - Insomnia [Unknown]
  - Bone density decreased [Not Recovered/Not Resolved]
  - Emotional distress [Unknown]
  - Dysuria [Recovered/Resolved]
  - Osteoporosis [Not Recovered/Not Resolved]
  - Gait disturbance [Unknown]
  - Pain in extremity [Unknown]
  - Pain [Unknown]

NARRATIVE: CASE EVENT DATE: 20170723
